FAERS Safety Report 17753950 (Version 5)
Quarter: 2022Q2

REPORT INFORMATION
  Report Type: Report from Study
  Country: US (occurrence: US)
  Receive Date: 20200507
  Receipt Date: 20220523
  Transmission Date: 20220720
  Serious: Yes (Hospitalization, Other)
  Sender: FDA-Public Use
  Company Number: US-SHIRE-US202015607

PATIENT
  Age: 57 Year
  Sex: Female

DRUGS (31)
  1. TEDUGLUTIDE [Suspect]
     Active Substance: TEDUGLUTIDE
     Indication: Short-bowel syndrome
     Dosage: 3.38 MILLIGRAM, 1X/DAY:QD
     Route: 058
     Dates: start: 20191005
  2. TEDUGLUTIDE [Suspect]
     Active Substance: TEDUGLUTIDE
     Indication: Short-bowel syndrome
     Dosage: 3.38 MILLIGRAM, 1X/DAY:QD
     Route: 058
     Dates: start: 20191005
  3. TEDUGLUTIDE [Suspect]
     Active Substance: TEDUGLUTIDE
     Indication: Short-bowel syndrome
     Dosage: 3.38 MILLIGRAM, 1X/DAY:QD
     Route: 058
     Dates: start: 20191005
  4. TEDUGLUTIDE [Suspect]
     Active Substance: TEDUGLUTIDE
     Indication: Short-bowel syndrome
     Dosage: 3.38 MILLIGRAM, 1X/DAY:QD
     Route: 058
     Dates: start: 20191005
  5. TEDUGLUTIDE [Suspect]
     Active Substance: TEDUGLUTIDE
     Dosage: 0.3400 UNIT UNKNOWN
     Route: 058
     Dates: start: 20191008
  6. TEDUGLUTIDE [Suspect]
     Active Substance: TEDUGLUTIDE
     Dosage: 0.3400 UNIT UNKNOWN
     Route: 058
     Dates: start: 20191008
  7. TEDUGLUTIDE [Suspect]
     Active Substance: TEDUGLUTIDE
     Dosage: 0.3400 UNIT UNKNOWN
     Route: 058
     Dates: start: 20191008
  8. TEDUGLUTIDE [Suspect]
     Active Substance: TEDUGLUTIDE
     Dosage: 0.3400 UNIT UNKNOWN
     Route: 058
     Dates: start: 20191008
  9. TEDUGLUTIDE [Suspect]
     Active Substance: TEDUGLUTIDE
     Dosage: 0.34 MILLILITER, 1X/DAY:QD
     Route: 058
     Dates: start: 20200117
  10. TEDUGLUTIDE [Suspect]
     Active Substance: TEDUGLUTIDE
     Dosage: 0.34 MILLILITER, 1X/DAY:QD
     Route: 058
     Dates: start: 20200117
  11. TEDUGLUTIDE [Suspect]
     Active Substance: TEDUGLUTIDE
     Dosage: 0.34 MILLILITER, 1X/DAY:QD
     Route: 058
     Dates: start: 20200117
  12. TEDUGLUTIDE [Suspect]
     Active Substance: TEDUGLUTIDE
     Dosage: 0.34 MILLILITER, 1X/DAY:QD
     Route: 058
     Dates: start: 20200117
  13. TEDUGLUTIDE [Suspect]
     Active Substance: TEDUGLUTIDE
     Dosage: 0.34 MILLILITER, 1X/DAY:QD
     Route: 058
     Dates: start: 20200121
  14. TEDUGLUTIDE [Suspect]
     Active Substance: TEDUGLUTIDE
     Dosage: 0.34 MILLILITER, 1X/DAY:QD
     Route: 058
     Dates: start: 20200121
  15. TEDUGLUTIDE [Suspect]
     Active Substance: TEDUGLUTIDE
     Dosage: 0.34 MILLILITER, 1X/DAY:QD
     Route: 058
     Dates: start: 20200121
  16. TEDUGLUTIDE [Suspect]
     Active Substance: TEDUGLUTIDE
     Dosage: 0.34 MILLILITER, 1X/DAY:QD
     Route: 058
     Dates: start: 20200121
  17. TEDUGLUTIDE [Suspect]
     Active Substance: TEDUGLUTIDE
     Dosage: 0.34 MILLILITER, 1X/DAY:QD
     Route: 058
     Dates: start: 20200325
  18. TEDUGLUTIDE [Suspect]
     Active Substance: TEDUGLUTIDE
     Dosage: 0.34 MILLILITER, 1X/DAY:QD
     Route: 058
     Dates: start: 20200325
  19. TEDUGLUTIDE [Suspect]
     Active Substance: TEDUGLUTIDE
     Dosage: 0.34 MILLILITER, 1X/DAY:QD
     Route: 058
     Dates: start: 20200325
  20. TEDUGLUTIDE [Suspect]
     Active Substance: TEDUGLUTIDE
     Dosage: 0.34 MILLILITER, 1X/DAY:QD
     Route: 058
     Dates: start: 20200325
  21. TEDUGLUTIDE [Suspect]
     Active Substance: TEDUGLUTIDE
     Dosage: 0.34 MILLILITER, QD
     Route: 058
     Dates: start: 20190905
  22. TEDUGLUTIDE [Suspect]
     Active Substance: TEDUGLUTIDE
     Dosage: 0.34 MILLILITER, QD
     Route: 058
     Dates: start: 20190905
  23. TEDUGLUTIDE [Suspect]
     Active Substance: TEDUGLUTIDE
     Dosage: 0.34 MILLILITER, QD
     Route: 058
     Dates: start: 20190905
  24. TEDUGLUTIDE [Suspect]
     Active Substance: TEDUGLUTIDE
     Dosage: 0.34 MILLILITER, QD
     Route: 058
     Dates: start: 20190905
  25. TEDUGLUTIDE [Suspect]
     Active Substance: TEDUGLUTIDE
     Dosage: 3.38 MILLIGRAM, QD
     Route: 042
     Dates: start: 20191004
  26. TEDUGLUTIDE [Suspect]
     Active Substance: TEDUGLUTIDE
     Dosage: 3.38 MILLIGRAM, QD
     Route: 042
     Dates: start: 20191004
  27. TEDUGLUTIDE [Suspect]
     Active Substance: TEDUGLUTIDE
     Dosage: 3.38 MILLIGRAM, QD
     Route: 042
     Dates: start: 20191004
  28. TEDUGLUTIDE [Suspect]
     Active Substance: TEDUGLUTIDE
     Dosage: 3.38 MILLIGRAM, QD
     Route: 042
     Dates: start: 20191004
  29. LOSARTAN [Concomitant]
     Active Substance: LOSARTAN
     Indication: Hypertension
     Dosage: 12.50 MILLIGRAM, QD
     Route: 048
     Dates: start: 20200703
  30. VITAMIN D2 [Concomitant]
     Active Substance: ERGOCALCIFEROL
     Indication: Short-bowel syndrome
     Dosage: 50000 INTERNATIONAL UNIT, 2/WEEK
     Route: 048
     Dates: start: 20200205
  31. AZTREONAM [Concomitant]
     Active Substance: AZTREONAM
     Indication: Bacteraemia
     Dosage: 2 GRAM, TID
     Route: 042
     Dates: start: 20200703, end: 20200724

REACTIONS (1)
  - Device related bacteraemia [Recovered/Resolved]

NARRATIVE: CASE EVENT DATE: 20200629
